FAERS Safety Report 8146098 (Version 2)
Quarter: 2015Q2

REPORT INFORMATION
  Report Type: Spontaneous
  Country: US (occurrence: US)
  Receive Date: 20110921
  Receipt Date: 20150409
  Transmission Date: 20150821
  Serious: Yes (Hospitalization)
  Sender: FDA-Public Use
  Company Number: US-JNJFOC-20110905791

PATIENT
  Sex: Male

DRUGS (1)
  1. LISTERINE COOL MINT ANTISEPTIC [Suspect]
     Active Substance: EUCALYPTOL\MENTHOL\METHYL SALICYLATE\THYMOL
     Indication: PRODUCT USED FOR UNKNOWN INDICATION
     Dosage: ABOUT 1 CUP
     Route: 048
     Dates: start: 20110911

REACTIONS (3)
  - Incorrect route of drug administration [Unknown]
  - Product quality issue [None]
  - Intentional product use issue [Unknown]

NARRATIVE: CASE EVENT DATE: 20110911
